FAERS Safety Report 9881203 (Version 2)
Quarter: 2014Q1

REPORT INFORMATION
  Report Type: Report from Study
  Country: US (occurrence: US)
  Receive Date: 20140207
  Receipt Date: 20140217
  Transmission Date: 20141002
  Serious: Yes (Death, Other)
  Sender: FDA-Public Use
  Company Number: PHEH2014US002539

PATIENT
  Sex: Male

DRUGS (1)
  1. EXJADE [Suspect]
     Indication: MYELODYSPLASTIC SYNDROME
     Dosage: 2 DF, EVERY MORNING
     Route: 048
     Dates: start: 201301

REACTIONS (3)
  - Myelodysplastic syndrome [Fatal]
  - Fall [Unknown]
  - General physical health deterioration [Unknown]
